FAERS Safety Report 6601146-X (Version None)
Quarter: 2010Q1

REPORT INFORMATION
  Report Type: 
  Country: None (occurrence: None)
  Receive Date: 20100225
  Receipt Date: 20100219
  Transmission Date: 20100710
  Serious: Yes (Death, Life-Threatening, Hospitalization)
  Sender: FDA-Public Use
  Company Number: US-ELI_LILLY_AND_COMPANY-US201002005915

PATIENT
  Sex: Female
  Weight: 90.249 kg

DRUGS (12)
  1. PEMETREXED [Suspect]
     Indication: NON-SMALL CELL LUNG CANCER
     Dosage: UNK, OTHER
     Route: 042
     Dates: start: 20080424
  2. CETUXIMAB [Suspect]
     Indication: NON-SMALL CELL LUNG CANCER
     Dosage: UNK, OTHER
     Route: 042
     Dates: start: 20080424, end: 20080730
  3. DARVOCET-N 100 [Concomitant]
  4. TYLENOL                                 /SCH/ [Concomitant]
     Indication: PAIN
  5. MULTI-VITAMIN [Concomitant]
     Indication: SUPPLEMENTATION THERAPY
  6. SLOW-MAG [Concomitant]
     Dosage: UNK, 2/D
     Route: 048
  7. MAXIDEX [Concomitant]
     Indication: OEDEMA PERIPHERAL
  8. ARIMIDEX [Concomitant]
     Dosage: 1 MG, DAILY (1/D)
  9. ZOFRAN [Concomitant]
     Dosage: UNK, AS NEEDED
  10. DECADRON /NET/ [Concomitant]
     Indication: PREMEDICATION
  11. VITAMIN A [Concomitant]
  12. MIRAPEX [Concomitant]
     Indication: RESTLESS LEGS SYNDROME

REACTIONS (1)
  - PNEUMONITIS [None]
